FAERS Safety Report 11695719 (Version 1)
Quarter: 2015Q4

REPORT INFORMATION
  Report Type: Spontaneous
  Country: US (occurrence: None)
  Receive Date: 20151103
  Receipt Date: 20151103
  Transmission Date: 20160304
  Serious: Yes (Other)
  Sender: FDA-Public Use
  Company Number: None

PATIENT
  Age: 73 Year
  Sex: Female
  Weight: 79.38 kg

DRUGS (26)
  1. LOTRISONE REAM [Concomitant]
  2. METHADONE [Concomitant]
     Active Substance: METHADONE HYDROCHLORIDE
  3. ACETAMINOPHEN. [Concomitant]
     Active Substance: ACETAMINOPHEN
  4. POTASSIUM [Concomitant]
     Active Substance: POTASSIUM
  5. COLESTID [Concomitant]
     Active Substance: COLESTIPOL HYDROCHLORIDE
  6. PENTOXIFYLLINE ER [Concomitant]
  7. EFFEXOR [Concomitant]
     Active Substance: VENLAFAXINE HYDROCHLORIDE
  8. AMOXICILLIN 500MG [Suspect]
     Active Substance: AMOXICILLIN
     Indication: INCISION SITE INFECTION
     Route: 048
  9. BACTRIM DS [Suspect]
     Active Substance: SULFAMETHOXAZOLE\TRIMETHOPRIM
     Indication: INCISION SITE INFECTION
     Route: 048
  10. LOTRIMINE CREAM [Concomitant]
  11. SIMVASTATIN. [Concomitant]
     Active Substance: SIMVASTATIN
  12. LOMOTIL [Concomitant]
     Active Substance: ATROPINE SULFATE\DIPHENOXYLATE HYDROCHLORIDE
  13. MAXZIDE [Concomitant]
     Active Substance: HYDROCHLOROTHIAZIDE\TRIAMTERENE
  14. VITAMIN D3 [Concomitant]
     Active Substance: CHOLECALCIFEROL
  15. PRESERVISION [Concomitant]
     Active Substance: MINERALS\VITAMINS
  16. OMEGA 3 FISH OIL [Concomitant]
     Active Substance: FISH OIL\OMEGA-3 FATTY ACIDS
  17. PEARLS PROBIOTICS [Concomitant]
  18. BACLOFEN. [Concomitant]
     Active Substance: BACLOFEN
  19. LEVOTHYROXINE. [Concomitant]
     Active Substance: LEVOTHYROXINE
  20. ALEVE [Concomitant]
     Active Substance: NAPROXEN SODIUM
  21. JUICE PLUS+ [Concomitant]
  22. LACTASE ENZYME [Concomitant]
  23. NEURONTIN [Concomitant]
     Active Substance: GABAPENTIN
  24. EFFEXOR [Concomitant]
     Active Substance: VENLAFAXINE HYDROCHLORIDE
  25. GLUCOSAMINE + CHONDROITON [Concomitant]
  26. LUTEIN [Concomitant]
     Active Substance: LUTEIN

REACTIONS (1)
  - Diarrhoea [None]

NARRATIVE: CASE EVENT DATE: 20151023
